FAERS Safety Report 6935361-2 (Version None)
Quarter: 2010Q3

REPORT INFORMATION
  Report Type: 
  Country: None (occurrence: None)
  Receive Date: 20100823
  Receipt Date: 20100809
  Transmission Date: 20110219
  Serious: Yes (Hospitalization)
  Sender: FDA-Public Use
  Company Number: US-BIOGENIDEC-2010BI025503

PATIENT
  Age: 57 Year
  Sex: Female

DRUGS (17)
  1. TYSABRI [Suspect]
     Indication: MULTIPLE SCLEROSIS
     Route: 042
     Dates: start: 20070629
  2. ALDACTONE [Concomitant]
     Route: 048
  3. INSULIN [Concomitant]
  4. K-DUR [Concomitant]
     Route: 048
  5. PROZAC [Concomitant]
     Route: 048
  6. PRILOSEC [Concomitant]
     Route: 048
  7. LAMICTAL [Concomitant]
     Route: 048
  8. SYNTHROID [Concomitant]
     Route: 048
  9. LYRICA [Concomitant]
     Route: 048
  10. DEPAKOTE [Concomitant]
     Route: 048
  11. LIDODERM [Concomitant]
  12. DILAUDID [Concomitant]
  13. VICODIN [Concomitant]
  14. ZOFRAN [Concomitant]
     Indication: NAUSEA
  15. LASIX [Concomitant]
     Indication: LYMPHOEDEMA
  16. PROVIGIL [Concomitant]
  17. ALLOPURINOL [Concomitant]
     Indication: GOUT

REACTIONS (13)
  - BLADDER SPASM [None]
  - DECREASED APPETITE [None]
  - DIARRHOEA [None]
  - FATIGUE [None]
  - HEADACHE [None]
  - HYPERTONIC BLADDER [None]
  - HYPOALBUMINAEMIA [None]
  - HYPOPHOSPHATAEMIA [None]
  - IRON DEFICIENCY ANAEMIA [None]
  - MULTIPLE SCLEROSIS RELAPSE [None]
  - POOR VENOUS ACCESS [None]
  - PYELONEPHRITIS [None]
  - VOMITING [None]
